FAERS Safety Report 21665414 (Version 2)
Quarter: 2022Q4

REPORT INFORMATION
  Report Type: Spontaneous
  Country: US (occurrence: US)
  Receive Date: 20221201
  Receipt Date: 20221227
  Transmission Date: 20230112
  Serious: Yes (Hospitalization)
  Sender: FDA-Public Use
  Company Number: US-BIOVITRUM-2022US14102

PATIENT
  Sex: Male
  Weight: 14 kg

DRUGS (24)
  1. SYNAGIS [Suspect]
     Active Substance: PALIVIZUMAB
     Indication: Dyspnoea
  2. VITAMIN D3 [Concomitant]
     Active Substance: CHOLECALCIFEROL
     Dosage: 1MM UNIT/G LIQUID
  3. EFFER-K [Concomitant]
     Dosage: 10 MEQ EFF
  4. SABRIL [Concomitant]
     Active Substance: VIGABATRIN
     Dosage: TABLET
  5. FELBAMATE [Concomitant]
     Active Substance: FELBAMATE
     Dosage: TABLET
  6. VITAMINS NOS [Concomitant]
     Active Substance: VITAMINS
     Dosage: CAPSULE
  7. CLONIDINE HYDROCHLORIDE [Concomitant]
     Active Substance: CLONIDINE HYDROCHLORIDE
     Dosage: TABLET
  8. DEPAKOTE [Concomitant]
     Active Substance: DIVALPROEX SODIUM
     Dosage: TABLET DR
  9. MACRODANTIN [Concomitant]
     Active Substance: NITROFURANTOIN
     Dosage: CAPSULE
  10. CLONAZEPAM [Concomitant]
     Active Substance: CLONAZEPAM
     Dosage: TAB RAPDIS
  11. EPIDIOLEX [Concomitant]
     Active Substance: CANNABIDIOL
     Dosage: 100 MG/ML SOLUTION
  12. GABAPENTIN [Concomitant]
     Active Substance: GABAPENTIN
     Dosage: TABLET
  13. MIRALAX [Concomitant]
     Active Substance: POLYETHYLENE GLYCOL 3350
     Dosage: POWD PACK
  14. TOBRAMYCIN SULFATE [Concomitant]
     Active Substance: TOBRAMYCIN SULFATE
     Dosage: 10 MG/ML VIAL
  15. LEVOCARNITINE [Concomitant]
     Active Substance: LEVOCARNITINE
     Dosage: TABLET
  16. ALBUTEROL SULFATE [Concomitant]
     Active Substance: ALBUTEROL SULFATE
  17. SYNAGIS [Suspect]
     Active Substance: PALIVIZUMAB
     Indication: Hypoxia
  18. EPINEPHRINE [Concomitant]
     Active Substance: EPINEPHRINE
  19. SYNAGIS [Suspect]
     Active Substance: PALIVIZUMAB
     Indication: Infantile spasms
  20. SYNAGIS [Suspect]
     Active Substance: PALIVIZUMAB
     Indication: Status epilepticus
  21. SYNAGIS [Suspect]
     Active Substance: PALIVIZUMAB
     Indication: Chronic respiratory failure
  22. SYNAGIS [Suspect]
     Active Substance: PALIVIZUMAB
     Indication: Palliative care
  23. SYNAGIS [Suspect]
     Active Substance: PALIVIZUMAB
     Indication: Neuromyopathy
  24. SYNAGIS [Suspect]
     Active Substance: PALIVIZUMAB
     Indication: Lennox-Gastaut syndrome

REACTIONS (3)
  - Dyspnoea [Unknown]
  - Weight decreased [Unknown]
  - Off label use [Unknown]
